FAERS Safety Report 7477722-1 (Version None)
Quarter: 2011Q2

REPORT INFORMATION
  Report Type: 
  Country: None (occurrence: None)
  Receive Date: 20110513
  Receipt Date: 20110429
  Transmission Date: 20111010
  Serious: Yes (Hospitalization)
  Sender: FDA-Public Use
  Company Number: JP-ELI_LILLY_AND_COMPANY-JP201103002995

PATIENT
  Sex: Female

DRUGS (3)
  1. CYTOTEC [Concomitant]
     Route: 048
  2. FORTEO [Suspect]
     Dosage: UNK UNK, QD
     Route: 058
     Dates: start: 20101111
  3. LOXONIN [Concomitant]
     Route: 048

REACTIONS (3)
  - BACK PAIN [None]
  - FEELING ABNORMAL [None]
  - ARRHYTHMIA [None]
